FAERS Safety Report 6010887-7 (Version None)
Quarter: 2008Q4

REPORT INFORMATION
  Report Type: 
  Country: None (occurrence: None)
  Receive Date: 20081216
  Receipt Date: 20081201
  Transmission Date: 20090506
  Serious: Yes (Death)
  Sender: FDA-Public Use
  Company Number: KV200800817

PATIENT
  Age: 86 Year
  Sex: Male
  Weight: 81.6 kg

DRUGS (12)
  1. ISOSORBIDE MONONITRATE [Suspect]
     Indication: DRUG USE FOR UNKNOWN INDICATION
     Dosage: 90 MG, QD, ORAL
     Route: 048
     Dates: end: 20081121
  2. PLAVIX [Concomitant]
  3. METFORMIN HCL [Concomitant]
  4. LIPITOR [Concomitant]
  5. OMEPRAZOLE [Concomitant]
  6. HYDROCHLOROTHIAZIDE [Concomitant]
  7. TERAZOSIN HCL [Concomitant]
  8. MVI (VITAMINS NOS) [Concomitant]
  9. DETROL /01350201/ (TOLTERODINE) [Concomitant]
  10. BABY ASPIRIN (ACETALYSALICYLIC ACID) [Concomitant]
  11. METOPROLOL TARTRATE [Concomitant]
  12. ENALAPRIL MALEATE [Concomitant]

REACTIONS (1)
  - PRODUCT QUALITY ISSUE [None]
